FAERS Safety Report 4780403-6 (Version None)
Quarter: 2005Q3

REPORT INFORMATION
  Report Type: 
  Country: None (occurrence: None)
  Receive Date: 20050927
  Receipt Date: 20050118
  Transmission Date: 20060218
  Serious: Yes (Hospitalization)
  Sender: FDA-Public Use
  Company Number: GB-JNJFOC-20050104632

PATIENT
  Age: 47 Year
  Sex: Male

DRUGS (3)
  1. IBUPROFEN [Suspect]
     Route: 048
  2. IBUPROFEN [Suspect]
     Indication: HEADACHE
     Route: 048
  3. WARFARIN SODIUM [Concomitant]
     Dosage: AS PER INR,ORAL

REACTIONS (4)
  - CHEST PAIN [None]
  - DYSPNOEA [None]
  - MELAENA [None]
  - OESOPHAGITIS [None]
